FAERS Safety Report 5144526-4 (Version None)
Quarter: 2006Q4

REPORT INFORMATION
  Report Type: 
  Country: None (occurrence: None)
  Receive Date: 20061031
  Receipt Date: 20061016
  Transmission Date: 20070319
  Serious: Yes (Hospitalization)
  Sender: FDA-Public Use
  Company Number: 2006-149275-NL

PATIENT
  Age: 7 Year
  Sex: Female

DRUGS (5)
  1. DEXAMETHASONE TAB [Suspect]
     Indication: ACUTE LYMPHOCYTIC LEUKAEMIA
     Dosage: DF ORAL
     Route: 048
  2. ASPARAGINASE [Suspect]
     Indication: ACUTE LYMPHOCYTIC LEUKAEMIA
     Dosage: DF INTRAMUSCULAR
     Route: 030
  3. DOXORUBICIN HCL [Suspect]
     Indication: ACUTE LYMPHOCYTIC LEUKAEMIA
     Dosage: DF INTRAVENOUS (NOS)
     Route: 042
  4. METHOTREXATE [Suspect]
     Indication: ACUTE LYMPHOCYTIC LEUKAEMIA
     Dosage: DF INTRAVENOUS (NOS)
     Route: 042
  5. VINCRISTINE [Suspect]
     Indication: ACUTE LYMPHOCYTIC LEUKAEMIA
     Dosage: DF INTRAVENOUS (NOS)
     Route: 042

REACTIONS (10)
  - ABDOMINAL DISTENSION [None]
  - CAECITIS [None]
  - CONSTIPATION [None]
  - GASTROENTERITIS VIRAL [None]
  - INTUSSUSCEPTION [None]
  - NAUSEA [None]
  - NECROTISING COLITIS [None]
  - NEUTROPENIA [None]
  - ORAL INTAKE REDUCED [None]
  - VOMITING [None]
